FAERS Safety Report 21207044 (Version 1)
Quarter: 2022Q3

REPORT INFORMATION
  Report Type: Spontaneous
  Country: US (occurrence: None)
  Receive Date: 20220811
  Receipt Date: 20220811
  Transmission Date: 20221026
  Serious: Yes (Hospitalization)
  Sender: FDA-Public Use
  Company Number: None

PATIENT
  Sex: Female

DRUGS (14)
  1. REPATHA [Suspect]
     Active Substance: EVOLOCUMAB
     Indication: Hyperlipidaemia
     Dosage: INJECT 1 PEN UNDER THE SKIN (SUBCUTANEOUS INJECTION) EVERY 14 DAYS?
     Route: 058
     Dates: start: 20170511
  2. ALBUTEROL [Concomitant]
     Active Substance: ALBUTEROL
  3. ALLERGY TAB [Concomitant]
  4. ANDRO ELLIPT AER [Concomitant]
  5. ARNUITY ELPT INH [Concomitant]
  6. BENZONATATE CAP [Concomitant]
  7. CALCIUM TAB-D [Concomitant]
  8. CARVEDILOL [Concomitant]
     Active Substance: CARVEDILOL
  9. CITALOPRAM TAB [Concomitant]
  10. ELIQUIS [Concomitant]
     Active Substance: APIXABAN
  11. FELODIPINE TAB [Concomitant]
  12. IRBESATAN TAB [Concomitant]
  13. MELATONIN TAB MAX ST [Concomitant]
  14. VITAMIN D3 CAP [Concomitant]

REACTIONS (2)
  - Hospitalisation [None]
  - Therapy interrupted [None]
